FAERS Safety Report 10718996 (Version 2)
Quarter: 2015Q1

REPORT INFORMATION
  Report Type: Spontaneous
  Country: US (occurrence: US)
  Receive Date: 20150119
  Receipt Date: 20150119
  Transmission Date: 20150721
  Serious: Yes (Hospitalization)
  Sender: FDA-Public Use
  Company Number: US-UNITED THERAPEUTICS-UNT-2014-002810

PATIENT
  Sex: Male
  Weight: 95.23 kg

DRUGS (5)
  1. ADCIRCA [Concomitant]
     Active Substance: TADALAFIL
     Indication: PRODUCT USED FOR UNKNOWN INDICATION
  2. REMODULIN [Suspect]
     Active Substance: TREPROSTINIL
     Indication: PORTOPULMONARY HYPERTENSION
     Dosage: 0.005 ?G/KG/MIN, CONTINUING
     Route: 058
  3. LETAIRIS [Suspect]
     Active Substance: AMBRISENTAN
     Indication: PRODUCT USED FOR UNKNOWN INDICATION
     Dosage: 10 MG, QID
     Route: 048
     Dates: start: 20140326
  4. REMODULIN [Suspect]
     Active Substance: TREPROSTINIL
     Dosage: 0.01 ?G/KG, UNK
     Route: 041
     Dates: start: 20140603
  5. REMODULIN [Suspect]
     Active Substance: TREPROSTINIL
     Dosage: 0.014 ?G/KG, UNK
     Route: 041
     Dates: start: 20140815

REACTIONS (5)
  - Infusion site pain [Recovered/Resolved]
  - Blister [Unknown]
  - Infusion site erythema [Unknown]
  - Infusion site vesicles [Unknown]
  - Headache [Unknown]

NARRATIVE: CASE EVENT DATE: 2014
